FAERS Safety Report 8317514-4 (Version None)
Quarter: 2012Q2

REPORT INFORMATION
  Report Type: 
  Country: None (occurrence: None)
  Receive Date: 20120427
  Receipt Date: 20120417
  Transmission Date: 20120825
  Serious: Yes (Other)
  Sender: FDA-Public Use
  Company Number: JP-BAYER-2012-038205

PATIENT
  Age: 74 Year
  Sex: Male

DRUGS (6)
  1. CRESTOR [Concomitant]
     Dosage: DAILY DOSE 2.5 MG
     Route: 048
     Dates: start: 20091014
  2. ALLOPURINOL [Concomitant]
     Dosage: DAILY DOSE 200 MG
     Route: 048
     Dates: start: 20100825
  3. NIFEDIPINE [Suspect]
     Indication: HYPERTENSION
     Dosage: 20 MG, OM
     Route: 048
     Dates: start: 20100407
  4. OLMESARTAN MEDOXOMIL [Concomitant]
     Indication: HYPERTENSION
     Dosage: 40 MG, OM
     Route: 048
     Dates: start: 20050203
  5. GLUCOBAY [Concomitant]
     Dosage: DAILY DOSE 300 MG
     Route: 048
     Dates: start: 20050203
  6. CALBLOCK [Concomitant]
     Indication: HYPERTENSION
     Dosage: 16 MG, OM
     Route: 048
     Dates: start: 20041228, end: 20100407

REACTIONS (2)
  - CARDIAC FAILURE [None]
  - OEDEMA PERIPHERAL [None]
